FAERS Safety Report 20573017 (Version 2)
Quarter: 2022Q1

REPORT INFORMATION
  Report Type: Spontaneous
  Country: JP (occurrence: JP)
  Receive Date: 20220309
  Receipt Date: 20220331
  Transmission Date: 20220423
  Serious: Yes (Death, Other)
  Sender: FDA-Public Use
  Company Number: JP-Eisai-202112494_LEN-HCC_P_1

PATIENT
  Sex: Male
  Weight: 62 kg

DRUGS (2)
  1. LENVATINIB [Suspect]
     Active Substance: LENVATINIB
     Indication: Hepatocellular carcinoma
     Route: 048
     Dates: start: 20181207
  2. LENVATINIB [Suspect]
     Active Substance: LENVATINIB
     Route: 048
     Dates: end: 2019

REACTIONS (6)
  - Malignant neoplasm progression [Fatal]
  - Coma hepatic [Recovered/Resolved]
  - Hypertension [Unknown]
  - Diarrhoea [Unknown]
  - Dysphonia [Unknown]
  - Taste disorder [Unknown]

NARRATIVE: CASE EVENT DATE: 20190828
